FAERS Safety Report 6541236-3 (Version None)
Quarter: 2010Q1

REPORT INFORMATION
  Report Type: 
  Country: None (occurrence: None)
  Receive Date: 20100118
  Receipt Date: 20100111
  Transmission Date: 20100710
  Serious: Yes (Life-Threatening, Hospitalization, Other)
  Sender: FDA-Public Use
  Company Number: US-ELI_LILLY_AND_COMPANY-US201001001641

PATIENT
  Sex: Male

DRUGS (15)
  1. HUMALOG [Suspect]
     Indication: DIABETES MELLITUS
     Dosage: 1.6 U, OTHER
     Route: 058
     Dates: start: 20010101
  2. HUMALOG [Suspect]
     Dosage: 1.6 U, OTHER
     Route: 058
     Dates: start: 20010101
  3. ASPIRIN [Concomitant]
     Dosage: 81 MG, DAILY (1/D)
  4. IMDUR [Concomitant]
     Dosage: UNK, 3/D
  5. LISINOPRIL [Concomitant]
     Dosage: 40 MG, 2/D
  6. HYDRALAZINE [Concomitant]
     Dosage: 25 MG, 3/D
  7. REGLAN [Concomitant]
     Dosage: 5 MG, OTHER
  8. REGLAN [Concomitant]
     Dosage: 5 MG, EACH EVENING
  9. CLONIDINE [Concomitant]
     Dosage: 0.1 MG, 2/D
  10. NEXIUM [Concomitant]
     Dosage: 40 MG, 3/D
  11. PROTONIX [Concomitant]
     Dosage: 40 MG, EACH EVENING
  12. LORAZEPAM [Concomitant]
     Dosage: 0.5 MG, EACH EVENING
  13. KEPPRA [Concomitant]
     Dosage: UNK, 2/D
  14. VICODIN [Concomitant]
     Dosage: UNK, AS NEEDED
  15. VERAPAMIL [Concomitant]
     Dosage: 360 MG, DAILY (1/D)

REACTIONS (16)
  - AGGRESSION [None]
  - BLOOD GLUCOSE DECREASED [None]
  - BLOOD GLUCOSE INCREASED [None]
  - BLOOD POTASSIUM DECREASED [None]
  - BLOOD PRESSURE ABNORMAL [None]
  - CLONUS [None]
  - COMA [None]
  - DIABETIC COMPLICATION [None]
  - FALL [None]
  - GRAND MAL CONVULSION [None]
  - HEAD INJURY [None]
  - MEMORY IMPAIRMENT [None]
  - MOBILITY DECREASED [None]
  - MUSCLE ATROPHY [None]
  - NEPHROLITHIASIS [None]
  - RENAL FAILURE CHRONIC [None]
